FAERS Safety Report 9445832 (Version 1)
Quarter: 2013Q3

REPORT INFORMATION
  Report Type: Spontaneous
  Country: CN (occurrence: CN)
  Receive Date: 20130807
  Receipt Date: 20130807
  Transmission Date: 20140515
  Serious: Yes (Hospitalization)
  Sender: FDA-Public Use
  Company Number: CN-BRISTOL-MYERS SQUIBB COMPANY-19141431

PATIENT
  Age: 66 Year
  Sex: Male

DRUGS (2)
  1. BARACLUDE [Suspect]
     Indication: CHRONIC HEPATITIS B
     Route: 048
     Dates: start: 20130720, end: 20130724
  2. CHINESE HERBS [Concomitant]
     Indication: CHRONIC HEPATITIS B

REACTIONS (4)
  - Headache [Unknown]
  - Nausea [Unknown]
  - Nasopharyngitis [Unknown]
  - Self-medication [Unknown]
